FAERS Safety Report 25768353 (Version 1)
Quarter: 2025Q3

REPORT INFORMATION
  Report Type: Spontaneous
  Country: US (occurrence: US)
  Receive Date: 20250905
  Receipt Date: 20250905
  Transmission Date: 20251021
  Serious: No
  Sender: DOMPE FARMACEUTICI
  Company Number: US-FARMAPROD-202506-2090

PATIENT
  Age: 89 Year
  Sex: Female
  Weight: 43.09 kg

DRUGS (2)
  1. OXERVATE [Suspect]
     Active Substance: CENEGERMIN-BKBJ
     Indication: Dry eye
     Route: 047
     Dates: start: 20250529
  2. OXERVATE [Suspect]
     Active Substance: CENEGERMIN-BKBJ
     Route: 047

REACTIONS (4)
  - Product dose omission issue [Unknown]
  - Device use issue [Unknown]
  - Off label use [Unknown]
  - Off label use [Unknown]
